FAERS Safety Report 5179016-6 (Version None)
Quarter: 2006Q4

REPORT INFORMATION
  Report Type: 
  Country: None (occurrence: None)
  Receive Date: 20061208
  Receipt Date: 20061205
  Transmission Date: 20070319
  Serious: Yes (Hospitalization)
  Sender: FDA-Public Use
  Company Number: LTI2006A00296

PATIENT
  Age: 38 Year
  Sex: Female

DRUGS (4)
  1. LEUPROLIDE ACETATE [Suspect]
     Indication: IN VITRO FERTILISATION
     Dosage: 1.87 MG (1.87 MG, 1 IN 1 DOSE)
     Route: 058
     Dates: start: 20050615, end: 20060615
  2. GONAL-F [Suspect]
     Indication: IN VITRO FERTILISATION
     Dosage: 27.75 IU (27.75 IU, 1 IN 1 D)
     Route: 058
     Dates: start: 20050701, end: 20050710
  3. GONADOTROPHIN CHRORIONIC (CHORIONIC GONADOTROPHIN) (INJECTION) [Suspect]
     Indication: IN VITRO FERTILISATION
     Dosage: 10000 IU (10000 IU, 11)
     Dates: start: 20050711
  4. UTROGESTAN (PROGESTERONE) CAPSULES [Concomitant]

REACTIONS (3)
  - ASCITES [None]
  - DYSPNOEA [None]
  - PLEURAL EFFUSION [None]
